FAERS Safety Report 7424424-3 (Version None)
Quarter: 2011Q2

REPORT INFORMATION
  Report Type: 
  Country: None (occurrence: None)
  Receive Date: 20110419
  Receipt Date: 20110330
  Transmission Date: 20111010
  Serious: No
  Sender: FDA-Public Use
  Company Number: US-ABBOTT-11P-163-0715898-00

PATIENT
  Age: 77 Year
  Sex: Male

DRUGS (2)
  1. PHOSPHORUS [Concomitant]
     Indication: PRODUCT USED FOR UNKNOWN INDICATION
     Dosage: GREATER THAN 1500MG
  2. ZEMPLAR [Suspect]
     Indication: PRODUCT USED FOR UNKNOWN INDICATION
     Dosage: 3X/WEEK
     Route: 042

REACTIONS (2)
  - BLOOD PHOSPHORUS DECREASED [None]
  - VITAMIN D DECREASED [None]
